FAERS Safety Report 9398618 (Version 1)
Quarter: 2013Q3

REPORT INFORMATION
  Report Type: Spontaneous
  Country: IN (occurrence: IN)
  Receive Date: 20130712
  Receipt Date: 20130712
  Transmission Date: 20140515
  Serious: Yes (Other)
  Sender: FDA-Public Use
  Company Number: PHHY2013IN072146

PATIENT
  Age: 40 Year
  Sex: Male

DRUGS (6)
  1. RIFAMPICIN [Suspect]
     Indication: MENINGITIS TUBERCULOUS
  2. ETHAMBUTOL [Suspect]
     Indication: MENINGITIS TUBERCULOUS
  3. ISONIAZID [Suspect]
     Indication: MENINGITIS TUBERCULOUS
  4. PYRAZINAMIDE SANDOZ [Suspect]
     Indication: MENINGITIS TUBERCULOUS
  5. PYRIDOXINE [Concomitant]
  6. DEXAMETHASONE [Concomitant]
     Dosage: 0.4 MG/KG, QD

REACTIONS (7)
  - Cytomegalovirus chorioretinitis [Unknown]
  - Vitreous floaters [Unknown]
  - Vision blurred [Unknown]
  - Chromaturia [Unknown]
  - Visual impairment [Unknown]
  - Pyrexia [Unknown]
  - Drug ineffective [Unknown]
